FAERS Safety Report 15481832 (Version 1)
Quarter: 2018Q4

REPORT INFORMATION
  Report Type: Spontaneous
  Country: IL (occurrence: IL)
  Receive Date: 20181003
  Receipt Date: 20181003
  Transmission Date: 20190205
  Serious: Yes (Hospitalization, Disabling)
  Sender: FDA-Public Use
  Company Number: None

PATIENT
  Age: 65 Year
  Sex: Male
  Weight: 93 kg

DRUGS (5)
  1. BENDAMUSTINE [Suspect]
     Active Substance: BENDAMUSTINE
     Indication: CHRONIC LYMPHOCYTIC LEUKAEMIA
     Dosage: ?          QUANTITY:2 DF DOSAGE FORM;OTHER FREQUENCY:2 DAY EVERY 4 WEEK;?
     Route: 042
     Dates: start: 20180602, end: 20180730
  2. BENDAMUSTINE [Suspect]
     Active Substance: BENDAMUSTINE
     Indication: B-CELL SMALL LYMPHOCYTIC LYMPHOMA
     Dosage: ?          QUANTITY:2 DF DOSAGE FORM;OTHER FREQUENCY:2 DAY EVERY 4 WEEK;?
     Route: 042
     Dates: start: 20180602, end: 20180730
  3. CO ENZYME 10 [Concomitant]
  4. TELFAST ALLERGY MEDICINE [Concomitant]
  5. MABTHERA [Suspect]
     Active Substance: RITUXIMAB
     Indication: B-CELL SMALL LYMPHOCYTIC LYMPHOMA

REACTIONS (4)
  - Aphasia [None]
  - Embolism [None]
  - Fall [None]
  - Cerebrovascular accident [None]

NARRATIVE: CASE EVENT DATE: 20180808
